FAERS Safety Report 6447135-X (Version None)
Quarter: 2009Q4

REPORT INFORMATION
  Report Type: 
  Country: None (occurrence: None)
  Receive Date: 20091119
  Receipt Date: 20091109
  Transmission Date: 20100525
  Serious: Yes (Other)
  Sender: FDA-Public Use
  Company Number: US-ABBOTT-09P-163-0607783-00

PATIENT
  Age: 28 Year
  Sex: Male

DRUGS (3)
  1. LEXAPRO [Suspect]
     Indication: INSOMNIA
     Route: 048
     Dates: start: 20040709
  2. CITALOPRAM HYDROBROMIDE [Suspect]
     Indication: INSOMNIA
     Route: 048
     Dates: start: 20040717
  3. CHLORMEZANONE [Concomitant]
     Indication: DRUG USE FOR UNKNOWN INDICATION

REACTIONS (2)
  - IMPRISONMENT [None]
  - SEXUAL ABUSE [None]
